FAERS Safety Report 19514180 (Version 1)
Quarter: 2021Q3

REPORT INFORMATION
  Report Type: Spontaneous
  Country: CN (occurrence: CN)
  Receive Date: 20210709
  Receipt Date: 20210709
  Transmission Date: 20211014
  Serious: Yes (Other)
  Sender: FDA-Public Use
  Company Number: NVSC2021CN153046

PATIENT
  Age: 51 Year
  Sex: Female

DRUGS (2)
  1. LIPOSOMAL DOXORUBICIN HCL [Suspect]
     Active Substance: DOXORUBICIN HYDROCHLORIDE
     Indication: OVARIAN CANCER STAGE III
     Dosage: 60 MG, CYCLIC, DAY 1
     Route: 065
  2. TOPOTECAN [Suspect]
     Active Substance: TOPOTECAN HYDROCHLORIDE
     Indication: OVARIAN CANCER STAGE III
     Dosage: 6 MG, CYCLIC, DAY 1?3
     Route: 065

REACTIONS (3)
  - Therapeutic response decreased [Unknown]
  - Myelosuppression [Unknown]
  - Leukopenia [Unknown]
